FAERS Safety Report 24883658 (Version 1)
Quarter: 2025Q1

REPORT INFORMATION
  Report Type: Spontaneous
  Country: MY (occurrence: MY)
  Receive Date: 20250124
  Receipt Date: 20250124
  Transmission Date: 20250409
  Serious: Yes (Hospitalization)
  Sender: PFIZER
  Company Number: MY-PFIZER INC-PV202400052996

PATIENT
  Age: 29 Year
  Sex: Male
  Weight: 73.5 kg

DRUGS (5)
  1. LORLATINIB [Suspect]
     Active Substance: LORLATINIB
     Indication: Non-small cell lung cancer
     Dosage: 100 MG, 1X/DAY
     Route: 048
     Dates: start: 20240215, end: 20240419
  2. LORLATINIB [Suspect]
     Active Substance: LORLATINIB
     Dosage: 75 MG, 1X/DAY
     Route: 048
     Dates: start: 20240419
  3. LIPITOR [Concomitant]
     Active Substance: ATORVASTATIN CALCIUM
     Indication: Hypercholesterolaemia
     Dosage: 40 MG, DAILY
  4. ARCOXIA [Concomitant]
     Active Substance: ETORICOXIB
     Indication: Myalgia
     Dosage: 60 MG, DAILY
  5. BIONERV [Concomitant]
     Indication: Neuropathy peripheral
     Dosage: 1 DF, DAILY (1 TABLET DAILY)

REACTIONS (2)
  - Pain [Recovering/Resolving]
  - Weight decreased [Unknown]
